FAERS Safety Report 14167422 (Version 1)
Quarter: 2017Q4

REPORT INFORMATION
  Report Type: Spontaneous
  Country: US (occurrence: US)
  Receive Date: 20171107
  Receipt Date: 20171107
  Transmission Date: 20180321
  Serious: No
  Sender: FDA-Public Use
  Company Number: US-BAUSCH-BL-2017-019433

PATIENT
  Age: 52 Year
  Sex: Female

DRUGS (4)
  1. UCERIS [Suspect]
     Active Substance: BUDESONIDE
     Indication: COLITIS ULCERATIVE
     Route: 048
     Dates: start: 2014
  2. LOSARTAN. [Concomitant]
     Active Substance: LOSARTAN
     Indication: HYPERTENSION
  3. DULOXETINE. [Concomitant]
     Active Substance: DULOXETINE
     Indication: DEPRESSION
  4. VITAMIN D [Concomitant]
     Active Substance: CHOLECALCIFEROL
     Indication: PRODUCT USED FOR UNKNOWN INDICATION

REACTIONS (8)
  - Hyperchlorhydria [Unknown]
  - Intentional product use issue [Unknown]
  - Gastrointestinal disorder [Unknown]
  - Skin atrophy [Unknown]
  - Drug effect incomplete [Unknown]
  - Petechiae [Unknown]
  - Contusion [Unknown]
  - Laceration [Unknown]

NARRATIVE: CASE EVENT DATE: 2014
